FAERS Safety Report 6841266-8 (Version None)
Quarter: 2010Q3

REPORT INFORMATION
  Report Type: 
  Country: None (occurrence: None)
  Receive Date: 20100714
  Receipt Date: 20070702
  Transmission Date: 20110219
  Serious: No
  Sender: FDA-Public Use
  Company Number: US-PFIZER INC-2007054936

PATIENT
  Sex: Female
  Weight: 79.545 kg

DRUGS (8)
  1. CHANTIX [Suspect]
     Indication: SMOKING CESSATION THERAPY
     Dates: start: 20070611
  2. CELEBREX [Concomitant]
  3. LIPITOR [Concomitant]
  4. GLUCOPHAGE [Concomitant]
  5. TRAZODONE HYDROCHLORIDE [Concomitant]
  6. CLONAZEPAM [Concomitant]
  7. LEXAPRO [Concomitant]
  8. PREMARIN [Concomitant]

REACTIONS (2)
  - NAUSEA [None]
  - NIGHTMARE [None]
